FAERS Safety Report 25067056 (Version 1)
Quarter: 2025Q1

REPORT INFORMATION
  Report Type: Report from Study
  Country: PR (occurrence: PR)
  Receive Date: 20250312
  Receipt Date: 20250312
  Transmission Date: 20250408
  Serious: Yes (Other)
  Sender: ABBVIE
  Company Number: PR-ABBVIE-6167528

PATIENT
  Age: 71 Year
  Sex: Male

DRUGS (1)
  1. HUMIRA [Suspect]
     Active Substance: ADALIMUMAB
     Indication: Crohn^s disease
     Dosage: CITRATE FREE
     Route: 058
     Dates: start: 20240201

REACTIONS (1)
  - Respiratory failure [Recovering/Resolving]

NARRATIVE: CASE EVENT DATE: 20250201
